FAERS Safety Report 15170966 (Version 2)
Quarter: 2019Q2

REPORT INFORMATION
  Report Type: Spontaneous
  Country: US (occurrence: US)
  Receive Date: 20180720
  Receipt Date: 20190611
  Transmission Date: 20190711
  Serious: No
  Sender: FDA-Public Use
  Company Number: US-SA-2018SA067695

PATIENT
  Age: 49 Year
  Sex: Female

DRUGS (1)
  1. AUBAGIO [Suspect]
     Active Substance: TERIFLUNOMIDE
     Indication: MULTIPLE SCLEROSIS
     Dosage: UNK UNK,QD
     Route: 048
     Dates: start: 20171207

REACTIONS (4)
  - Skin discolouration [Unknown]
  - Rash [Unknown]
  - Hypoaesthesia [Unknown]
  - Depressed mood [Unknown]
